FAERS Safety Report 7473953-5 (Version None)
Quarter: 2011Q2

REPORT INFORMATION
  Report Type: 
  Country: None (occurrence: None)
  Receive Date: 20110511
  Receipt Date: 20090323
  Transmission Date: 20111010
  Serious: Yes (Other)
  Sender: FDA-Public Use
  Company Number: US-BAYER-2011-009854

PATIENT
  Age: 72 Year
  Sex: Male
  Weight: 96.145 kg

DRUGS (28)
  1. TRASYLOL [Suspect]
     Dosage: 200 ML, X3
     Dates: start: 20031120, end: 20031121
  2. MUCOMYST [Concomitant]
     Dosage: 600 MG, X2
     Route: 048
     Dates: start: 20031118, end: 20031119
  3. TRASYLOL [Suspect]
     Indication: CORONARY ARTERY BYPASS
     Dosage: 1 ML, UNK
     Route: 042
     Dates: start: 20031120, end: 20031120
  4. RED BLOOD CELLS [Concomitant]
     Dosage: 1 U, UNK
     Route: 042
     Dates: start: 20031120, end: 20031120
  5. PAVULON [Concomitant]
     Dosage: 20 MG, UNK
     Route: 042
     Dates: start: 20031120, end: 20031120
  6. PROTAMINE SULFATE [Concomitant]
     Dosage: 30 MG, UNK
     Route: 042
     Dates: end: 20031120
  7. FENOLDOPAM [Concomitant]
     Dosage: 0.025 UNK, UNK
     Route: 042
     Dates: start: 20031120
  8. PLASMALYTE [GLUCOSE,POTASSIUM CHLORIDE] [Concomitant]
     Dosage: 1600 ML, UNK
     Route: 042
     Dates: start: 20031120, end: 20031120
  9. NITROGLYCERIN [Concomitant]
     Dosage: 2 INCHES, Q6HR
     Dates: start: 20031117, end: 20031120
  10. FRESH FROZEN PLASMA [Concomitant]
     Dosage: 4 U, UNK
     Route: 042
     Dates: start: 20031120, end: 20031120
  11. LISINOPRIL AND HYDROCHLOROTHIAZIDE [Concomitant]
     Dosage: 20/25 UNK, QD
     Route: 048
     Dates: start: 20031119
  12. VERAPAMIL [Concomitant]
     Dosage: 240 MG, QD
     Dates: start: 20031119
  13. HEPARIN [Concomitant]
     Dosage: 5000 U, UNK
     Route: 042
     Dates: start: 20031120, end: 20031120
  14. PROPOFOL [Concomitant]
     Dosage: 280 MG, UNK
     Route: 042
     Dates: start: 20031120, end: 20031120
  15. TRASYLOL [Suspect]
     Dosage: 280 MG, UNK
     Route: 042
     Dates: start: 20031120, end: 20031120
  16. ACETYLSALICYLIC ACID SRT [Concomitant]
     Dosage: 325 MG, QD
     Route: 048
     Dates: start: 20031117
  17. PLATELETS [Concomitant]
     Dosage: 10 U, UNK
     Route: 042
     Dates: start: 20031120, end: 20031120
  18. HEPARIN [Concomitant]
     Dosage: 35000 U, UNK
     Route: 042
     Dates: start: 20031120, end: 20031120
  19. XYLOCAIN [LIDOCAINE] [Concomitant]
     Dosage: 100 MG, UNK
     Route: 042
     Dates: start: 20031120
  20. CONTRAST MEDIA [Concomitant]
     Dosage: 120 ML, UNK
     Dates: start: 20031117
  21. VERSED [Concomitant]
     Dosage: 19 MG, UNK
     Route: 042
     Dates: start: 20031120
  22. MANNITOL [Concomitant]
     Dosage: 25 G, X2
     Route: 042
     Dates: start: 20031120, end: 20031120
  23. LIDOCAINE [Concomitant]
     Dosage: 100 MG, UNK
     Route: 042
     Dates: start: 20031120, end: 20031120
  24. CARDIOPLEGIA [Concomitant]
     Dosage: 4600 ML, UNK
     Route: 042
     Dates: start: 20031120, end: 20031120
  25. VASOPRESSIN [Concomitant]
     Dosage: 9 U, UNK
     Route: 042
     Dates: start: 20031120, end: 20031120
  26. FENTANYL [Concomitant]
     Dosage: 25 ML, UNK
     Route: 042
     Dates: start: 20031120
  27. ISOFLURANE [Concomitant]
     Dosage: 1.5 %, UNK
     Dates: start: 20031120, end: 20031120
  28. VECURONIUM BROMIDE [Concomitant]
     Dosage: 10 MG, UNK
     Route: 042
     Dates: start: 20031120, end: 20031120

REACTIONS (11)
  - RENAL INJURY [None]
  - PAIN [None]
  - RENAL FAILURE CHRONIC [None]
  - STRESS [None]
  - UNEVALUABLE EVENT [None]
  - FEAR [None]
  - ANXIETY [None]
  - RENAL FAILURE [None]
  - EMOTIONAL DISTRESS [None]
  - INJURY [None]
  - RENAL IMPAIRMENT [None]
